FAERS Safety Report 4386974-6 (Version None)
Quarter: 2004Q2

REPORT INFORMATION
  Report Type: 
  Country: None (occurrence: None)
  Receive Date: 20040630
  Receipt Date: 20040620
  Transmission Date: 20050107
  Serious: Yes (Life-Threatening, Other)
  Sender: FDA-Public Use
  Company Number: 200411969EU

PATIENT
  Age: 61 Year
  Sex: Female

DRUGS (7)
  1. ARAVA [Suspect]
     Indication: RHEUMATOID ARTHRITIS
     Route: 048
     Dates: start: 20040201, end: 20040601
  2. NSAID'S [Concomitant]
     Indication: RHEUMATOID ARTHRITIS
     Dates: end: 20040601
  3. MEDROL [Concomitant]
     Indication: RHEUMATOID ARTHRITIS
     Route: 048
     Dates: start: 19920101, end: 20040618
  4. ENBREL [Concomitant]
     Indication: RHEUMATOID ARTHRITIS
     Route: 048
     Dates: start: 20021201, end: 20040618
  5. SALOSPIR [Concomitant]
     Route: 048
     Dates: start: 20000101, end: 20040618
  6. LASIX [Concomitant]
     Indication: PERICARDITIS
     Route: 048
     Dates: start: 20000101, end: 20040618
  7. SOLOSA [Concomitant]
     Indication: DIABETES MELLITUS
     Route: 048

REACTIONS (5)
  - AORTIC THROMBOSIS [None]
  - BRAIN STEM INFARCTION [None]
  - CEREBELLAR INFARCTION [None]
  - EMBOLISM [None]
  - THROMBOCYTOPENIA [None]
